FAERS Safety Report 9681101 (Version 1)
Quarter: 2013Q4

REPORT INFORMATION
  Report Type: Other
  Country: DE (occurrence: DE)
  Receive Date: 20131111
  Receipt Date: 20131111
  Transmission Date: 20140711
  Serious: Yes (Hospitalization, Other)
  Sender: FDA-Public Use
  Company Number: DE-US-EMD SERONO, INC.-7248417

PATIENT
  Age: 59 Year
  Sex: Female

DRUGS (5)
  1. MITOXANTRONE [Suspect]
     Indication: SECONDARY PROGRESSIVE MULTIPLE SCLEROSIS
     Dosage: CUMULATIVE DOSES 140 MG/M2
     Dates: start: 201001, end: 201109
  2. BACLOFEN [Concomitant]
     Indication: MUSCLE SPASTICITY
  3. METHIONINE [Concomitant]
     Indication: CYSTITIS NONINFECTIVE
  4. GABAPENTINE [Concomitant]
     Indication: ANALGESIC THERAPY
  5. TROSPIUM CHLORIDE [Concomitant]
     Indication: HYPERTONIC BLADDER

REACTIONS (4)
  - Diabetes insipidus [Unknown]
  - Expanded disability status scale score increased [Unknown]
  - Subileus [Unknown]
  - Anaemia [Unknown]
